FAERS Safety Report 24783511 (Version 2)
Quarter: 2025Q1

REPORT INFORMATION
  Report Type: Spontaneous
  Country: US (occurrence: US)
  Receive Date: 20241227
  Receipt Date: 20250222
  Transmission Date: 20250409
  Serious: No
  Sender: SANOFI AVENTIS
  Company Number: US-SA-2024SA381966

PATIENT
  Age: 41 Year
  Sex: Male

DRUGS (4)
  1. ELOCTATE [Suspect]
     Active Substance: EFMOROCTOCOG ALFA
     Indication: Factor VIII deficiency
     Dosage: 4000 U, Q4D AS PROPHYLAXIS
     Route: 042
     Dates: start: 202202
  2. ELOCTATE [Suspect]
     Active Substance: EFMOROCTOCOG ALFA
     Indication: Factor VIII deficiency
     Dosage: 4000 U, Q4D AS PROPHYLAXIS
     Route: 042
     Dates: start: 202202
  3. ELOCTATE [Suspect]
     Active Substance: EFMOROCTOCOG ALFA
     Route: 042
     Dates: start: 202202
  4. ELOCTATE [Suspect]
     Active Substance: EFMOROCTOCOG ALFA
     Route: 042
     Dates: start: 202202

REACTIONS (3)
  - Epistaxis [Unknown]
  - Joint injury [Unknown]
  - Traumatic haemorrhage [Recovered/Resolved]

NARRATIVE: CASE EVENT DATE: 20241211
